FAERS Safety Report 11794261 (Version 1)
Quarter: 2015Q4

REPORT INFORMATION
  Report Type: Other
  Country: CA (occurrence: CA)
  Receive Date: 20151202
  Receipt Date: 20151202
  Transmission Date: 20160305
  Serious: Yes (Hospitalization)
  Sender: FDA-Public Use
  Company Number: CA-APOTEX-2015AP014840

PATIENT
  Age: 14 Year
  Sex: Male

DRUGS (2)
  1. PIPERACILLIN AND TAZOBACTAM [Suspect]
     Active Substance: PIPERACILLIN SODIUM\TAZOBACTAM SODIUM
     Indication: PYREXIA
     Dosage: 4000 MG, 1 EVERY 8 HOURS
     Route: 042
  2. GRANISETRON [Suspect]
     Active Substance: GRANISETRON
     Indication: PYREXIA
     Dosage: 1 MG, BID
     Route: 048

REACTIONS (1)
  - Disseminated intravascular coagulation [Unknown]
